FAERS Safety Report 24910976 (Version 5)
Quarter: 2025Q1

REPORT INFORMATION
  Report Type: Report from Study
  Country: US (occurrence: US)
  Receive Date: 20250131
  Receipt Date: 20250327
  Transmission Date: 20250408
  Serious: Yes (Other)
  Sender: OTSUKA
  Company Number: US-OTSUKA-2025_001990

PATIENT
  Sex: Female

DRUGS (9)
  1. BREXPIPRAZOLE [Suspect]
     Active Substance: BREXPIPRAZOLE
     Indication: Generalised anxiety disorder
     Route: 065
  2. BREXPIPRAZOLE [Suspect]
     Active Substance: BREXPIPRAZOLE
     Route: 065
  3. BREXPIPRAZOLE [Suspect]
     Active Substance: BREXPIPRAZOLE
     Route: 065
     Dates: start: 20250119
  4. BREXPIPRAZOLE [Suspect]
     Active Substance: BREXPIPRAZOLE
     Route: 065
     Dates: start: 20250119
  5. BREXPIPRAZOLE [Suspect]
     Active Substance: BREXPIPRAZOLE
     Route: 065
     Dates: start: 20250120
  6. BREXPIPRAZOLE [Suspect]
     Active Substance: BREXPIPRAZOLE
     Dosage: 0.25 MG, QOD
     Route: 065
     Dates: end: 20250223
  7. BREXPIPRAZOLE [Suspect]
     Active Substance: BREXPIPRAZOLE
     Route: 065
     Dates: start: 20250304
  8. EFFEXOR [Suspect]
     Active Substance: VENLAFAXINE HYDROCHLORIDE
     Indication: Generalised anxiety disorder
     Route: 065
  9. WELLBUTRIN [Suspect]
     Active Substance: BUPROPION HYDROCHLORIDE
     Indication: Generalised anxiety disorder
     Route: 065

REACTIONS (16)
  - Drug dependence [Unknown]
  - Diabetes mellitus [Unknown]
  - Depression [Unknown]
  - Crying [Unknown]
  - Blood cholesterol abnormal [Unknown]
  - Body temperature increased [Unknown]
  - Malaise [Unknown]
  - Discomfort [Unknown]
  - Decreased activity [Unknown]
  - Asthenia [Recovered/Resolved]
  - Asthenia [Unknown]
  - Irritability [Unknown]
  - Fatigue [Unknown]
  - Insomnia [Unknown]
  - Product use in unapproved indication [Unknown]
  - Inappropriate schedule of product administration [Unknown]
